FAERS Safety Report 13503262 (Version 3)
Quarter: 2017Q2

REPORT INFORMATION
  Report Type: Spontaneous
  Country: US (occurrence: US)
  Receive Date: 20170502
  Receipt Date: 20170630
  Transmission Date: 20170830
  Serious: No
  Sender: FDA-Public Use
  Company Number: US-PFIZER INC-2017186233

PATIENT
  Age: 64 Year
  Sex: Female

DRUGS (6)
  1. MORPHINE [Concomitant]
     Active Substance: MORPHINE
     Dosage: UNK
     Dates: start: 201604
  2. FUROSEMIDE. [Concomitant]
     Active Substance: FUROSEMIDE
     Dosage: UNK
     Dates: start: 201606
  3. IBRANCE [Suspect]
     Active Substance: PALBOCICLIB
     Indication: BREAST CANCER
     Dosage: 125 MG, 1X/DAY
     Dates: start: 201605
  4. LETROZOLE. [Concomitant]
     Active Substance: LETROZOLE
     Dosage: UNK
     Dates: start: 201605
  5. LORAZEPAM. [Concomitant]
     Active Substance: LORAZEPAM
     Dosage: UNK
     Dates: start: 201606
  6. OXYCODONE [Concomitant]
     Active Substance: OXYCODONE
     Dosage: UNK
     Dates: start: 201604

REACTIONS (13)
  - Poor quality sleep [Unknown]
  - Alopecia [Recovered/Resolved]
  - Pruritus [Unknown]
  - Nausea [Unknown]
  - Dysgeusia [Recovering/Resolving]
  - Hyperaesthesia [Not Recovered/Not Resolved]
  - Hypoaesthesia [Unknown]
  - White blood cell count abnormal [Not Recovered/Not Resolved]
  - Fatigue [Unknown]
  - Viral upper respiratory tract infection [Unknown]
  - Rhinorrhoea [Unknown]
  - Stomatitis [Unknown]
  - Cough [Unknown]

NARRATIVE: CASE EVENT DATE: 201605
